FAERS Safety Report 7144854-7 (Version None)
Quarter: 2010Q4

REPORT INFORMATION
  Report Type: 
  Country: None (occurrence: None)
  Receive Date: 20101123
  Receipt Date: 20100913
  Transmission Date: 20110411
  Serious: Yes (Hospitalization)
  Sender: FDA-Public Use
  Company Number: DSA_43955_2010

PATIENT
  Age: 16 Year
  Sex: Female

DRUGS (2)
  1. APLENZIN [Suspect]
     Indication: PRODUCT USED FOR UNKNOWN INDICATION
     Dosage: (348 MG) , (174 MG)
  2. LAMICTAL [Concomitant]

REACTIONS (1)
  - CONVULSION [None]
